FAERS Safety Report 13548832 (Version 1)
Quarter: 2017Q2

REPORT INFORMATION
  Report Type: Spontaneous
  Country: US (occurrence: US)
  Receive Date: 20170516
  Receipt Date: 20170516
  Transmission Date: 20170830
  Serious: No
  Sender: FDA-Public Use
  Company Number: US-BION-005937

PATIENT
  Age: 86 Year
  Sex: Female
  Weight: 67.13 kg

DRUGS (1)
  1. MOTRIN IB [Suspect]
     Active Substance: IBUPROFEN
     Indication: PAIN
     Route: 048
     Dates: start: 20170120

REACTIONS (2)
  - Intentional product misuse [Not Recovered/Not Resolved]
  - Drug prescribing error [Not Recovered/Not Resolved]
